FAERS Safety Report 13166184 (Version 1)
Quarter: 2017Q1

REPORT INFORMATION
  Report Type: Report from Study
  Country: NL (occurrence: NL)
  Receive Date: 20170131
  Receipt Date: 20170131
  Transmission Date: 20170428
  Serious: Yes (Death, Other)
  Sender: FDA-Public Use
  Company Number: NL-AMGEN-NLDSL2017012876

PATIENT
  Age: 67 Year
  Sex: Female

DRUGS (28)
  1. SODIUM CHLORIDE. [Concomitant]
     Active Substance: SODIUM CHLORIDE
     Dosage: 9 MG/ML, UNK
     Dates: start: 20170116
  2. MICONAZOL [Concomitant]
     Active Substance: MICONAZOLE NITRATE
     Dosage: 20 MG/G, BID
  3. METOCLOPRAMIDE. [Concomitant]
     Active Substance: METOCLOPRAMIDE
     Dosage: 10 MG, UNK
     Dates: start: 20160623
  4. MIDAZOLAM [Concomitant]
     Active Substance: MIDAZOLAM HYDROCHLORIDE
     Dosage: 7.5 MG, QD
     Dates: start: 20161219
  5. NEBIVOLOL. [Concomitant]
     Active Substance: NEBIVOLOL
     Dosage: 5 MG, QD
     Dates: start: 20161219
  6. FUSIDINEZUUR [Concomitant]
     Dosage: 20 MG/G, BID
  7. ACTISORB SILVER [Concomitant]
     Dosage: UNK
     Dates: start: 20161215
  8. DICLOFENAC SODIUM. [Concomitant]
     Active Substance: DICLOFENAC SODIUM
     Dosage: 50 MG, TID
     Dates: start: 20161228
  9. MORFINE HCL [Concomitant]
     Dosage: 20 MG/ML, UNK
     Dates: start: 20170113
  10. FULVESTRANT [Concomitant]
     Active Substance: FULVESTRANT
     Indication: NEOPLASM PROGRESSION
     Dosage: 50 MG/ML, QD
     Dates: start: 20160420
  11. FLUTICASON [Concomitant]
     Active Substance: FLUTICASONE
     Dosage: 0.5 MG/G, BID
  12. DOMPERIDON ACCORD [Concomitant]
     Dosage: 10 MG, QD
     Dates: start: 20161219
  13. PRONTOSAN [Concomitant]
     Dosage: UNK
     Dates: start: 20161222
  14. DALTEPARINE SODIQUE [Concomitant]
     Dosage: 5000IE/ML, QD
  15. LORAZEPAM. [Concomitant]
     Active Substance: LORAZEPAM
     Dosage: 1 MG, BID
     Dates: start: 20170102
  16. AMOXICILLINE/CLAVULAANZUUR [Concomitant]
     Active Substance: AMOXICILLIN\CLAVULANATE POTASSIUM
     Dosage: 500/125 MG, TID
     Dates: start: 20170105
  17. SCOPOLAMINE [Concomitant]
     Active Substance: SCOPOLAMINE
     Dosage: 20 MG/ML, UNK
     Dates: start: 20170117
  18. PANTOPRAZOL [Concomitant]
     Active Substance: PANTOPRAZOLE SODIUM
     Dosage: 40 MG, QD
     Dates: start: 20160524
  19. CALCIUM [Concomitant]
     Active Substance: CALCIUM
  20. ALLEVYN AG [Concomitant]
     Dosage: UNK
     Dates: start: 20161222
  21. DEXAMETHASON [Concomitant]
     Active Substance: DEXAMETHASONE
     Dosage: 0.5 MG, QD
     Dates: start: 20161227
  22. ACETYLCYSTEINE. [Concomitant]
     Active Substance: ACETYLCYSTEINE
     Dosage: 600 MG, QD
     Dates: start: 20170105
  23. METROSA [Concomitant]
     Dosage: 7.5 MG/G, UNK
     Dates: start: 20170118
  24. SUDOCREM [Concomitant]
     Dosage: 60 G, QD
     Dates: start: 20160524
  25. XGEVA [Suspect]
     Active Substance: DENOSUMAB
     Indication: METASTASES TO BONE
     Dosage: 120 MG, Q4WK
     Route: 058
     Dates: start: 201305
  26. OXAZEPAM. [Concomitant]
     Active Substance: OXAZEPAM
     Dosage: 10 MG, QD
     Dates: start: 20161219
  27. METFORMINE HCL [Concomitant]
     Active Substance: METFORMIN HYDROCHLORIDE
     Dosage: 500 MG, QD
     Dates: start: 20161227
  28. PARACETAMOL [Concomitant]
     Active Substance: ACETAMINOPHEN
     Dosage: 500 MG, QID
     Dates: start: 20160623

REACTIONS (5)
  - Angiosarcoma [Unknown]
  - Radiotherapy [Unknown]
  - Death [Fatal]
  - Pain in extremity [Unknown]
  - Neoplasm progression [Unknown]

NARRATIVE: CASE EVENT DATE: 20130601
